FAERS Safety Report 5581252-1 (Version None)
Quarter: 2007Q4

REPORT INFORMATION
  Report Type: 
  Country: None (occurrence: None)
  Receive Date: 20071226
  Receipt Date: 20071213
  Transmission Date: 20080405
  Serious: Yes (Hospitalization)
  Sender: FDA-Public Use
  Company Number: 001#1#2007-00806

PATIENT

DRUGS (1)
  1. NEUPRO [Suspect]
     Dosage: TRANSDERMAL
     Route: 062

REACTIONS (1)
  - ILL-DEFINED DISORDER [None]
